FAERS Safety Report 22031043 (Version 1)
Quarter: 2023Q1

REPORT INFORMATION
  Report Type: Report from Study
  Country: US (occurrence: US)
  Receive Date: 20230223
  Receipt Date: 20230223
  Transmission Date: 20230417
  Serious: Yes (Other)
  Sender: FDA-Public Use
  Company Number: US-AMGEN-USASL2022210235

PATIENT
  Age: 49 Year
  Sex: Female

DRUGS (1)
  1. ENBREL [Suspect]
     Active Substance: ETANERCEPT
     Indication: Psoriatic arthropathy
     Dosage: 50 MILLIGRAM, QWK
     Route: 065
     Dates: start: 202012

REACTIONS (4)
  - Illness [Unknown]
  - Rotator cuff repair [Unknown]
  - Drug dose omission by device [Unknown]
  - Expired device used [Unknown]

NARRATIVE: CASE EVENT DATE: 20220926
